FAERS Safety Report 8274419-5 (Version None)
Quarter: 2012Q2

REPORT INFORMATION
  Report Type: 
  Country: None (occurrence: None)
  Receive Date: 20120411
  Receipt Date: 20120405
  Transmission Date: 20120825
  Serious: No
  Sender: FDA-Public Use
  Company Number: US-PFIZER INC-2012087477

PATIENT

DRUGS (7)
  1. KLONOPIN [Suspect]
     Dosage: UNK
  2. CELEXA [Suspect]
     Dosage: UNK
  3. LYRICA [Suspect]
     Dosage: UNK
  4. SINGULAIR [Suspect]
     Dosage: UNK
  5. KEFLEX [Suspect]
     Dosage: UNK
  6. AMITRIPTYLINE HCL [Suspect]
     Dosage: UNK
  7. ULTRAM [Suspect]
     Dosage: UNK

REACTIONS (3)
  - OEDEMA PERIPHERAL [None]
  - MYOCLONUS [None]
  - DYSKINESIA [None]
